FAERS Safety Report 6141242-7 (Version None)
Quarter: 2009Q2

REPORT INFORMATION
  Report Type: 
  Country: None (occurrence: None)
  Receive Date: 20090402
  Receipt Date: 20090326
  Transmission Date: 20091009
  Serious: Yes (Death)
  Sender: FDA-Public Use
  Company Number: US-WATSON-2009-02027

PATIENT
  Age: 32 Year
  Sex: Male

DRUGS (5)
  1. LORAZEPAM [Suspect]
     Indication: DRUG USE FOR UNKNOWN INDICATION
     Dosage: UNK
     Route: 065
  2. BACLOFEN [Suspect]
     Indication: DRUG USE FOR UNKNOWN INDICATION
     Dosage: 10 MG, FOUR TIMES A DAY
     Route: 065
  3. OPANA ER [Suspect]
     Indication: ARTHRALGIA
     Dosage: 2 TABLETS, BID
     Route: 048
     Dates: start: 20081001
  4. ENDOCET [Suspect]
     Indication: DRUG USE FOR UNKNOWN INDICATION
     Dosage: 4-6 TABLETS, DAILY
     Route: 065
  5. CLONAZEPAM [Suspect]
     Indication: DRUG USE FOR UNKNOWN INDICATION
     Dosage: UNK
     Route: 065

REACTIONS (3)
  - DRUG EFFECT DECREASED [None]
  - DRUG TOXICITY [None]
  - SEDATION [None]
